FAERS Safety Report 7128433-3 (Version None)
Quarter: 2010Q4

REPORT INFORMATION
  Report Type: 
  Country: None (occurrence: None)
  Receive Date: 20101115
  Receipt Date: 20101029
  Transmission Date: 20110411
  Serious: Yes (Life-Threatening, Hospitalization)
  Sender: FDA-Public Use
  Company Number: 1000017194

PATIENT
  Age: 92 Year
  Sex: Female
  Weight: 80 kg

DRUGS (5)
  1. CITALOPRAM (CITALOPRAM HYDROBROMIDE) [Suspect]
     Dosage: 40 MG (20 MG, 2 IN 1 D)
  2. MIRTAZAPINE [Suspect]
     Dosage: 30 MG (15 MG, 2 IN 1 D)
  3. RAMIPRIL [Concomitant]
  4. TORSEMIDE [Concomitant]
  5. OMEP (OMEPRAZOLE) [Concomitant]

REACTIONS (2)
  - TORSADE DE POINTES [None]
  - VENTRICULAR FIBRILLATION [None]
